FAERS Safety Report 8791657 (Version 1)
Quarter: 2012Q4

REPORT INFORMATION
  Report Type: 
  Country: NO (occurrence: NO)
  Receive Date: 20120918
  Receipt Date: 20120918
  Transmission Date: 20130627
  Serious: Yes (Hospitalization)
  Sender: FDA-Public Use
  Company Number: NO-PFIZER INC-2012226496

PATIENT
  Age: 44 Year
  Sex: Female

DRUGS (3)
  1. NEURONTIN [Suspect]
     Indication: HEADACHE
     Dosage: 100 mg, 3x/day
     Route: 048
     Dates: start: 20120830, end: 20120831
  2. TRAMADOL [Concomitant]
     Indication: HEADACHE
     Dosage: 50 mg twice a day, when needed another 50 mg up to twice a day.
     Route: 048
  3. SOMAC [Concomitant]
     Dosage: 20 mg, 1x/day
     Route: 048

REACTIONS (3)
  - Abdominal pain [Unknown]
  - Alanine aminotransferase increased [Unknown]
  - Aspartate aminotransferase increased [Unknown]
